FAERS Safety Report 9726969 (Version 3)
Quarter: 2013Q4

REPORT INFORMATION
  Report Type: Spontaneous
  Country: JP (occurrence: JP)
  Receive Date: 20131203
  Receipt Date: 20131226
  Transmission Date: 20140711
  Serious: Yes (Hospitalization, Other)
  Sender: FDA-Public Use
  Company Number: JP-TAKEDA-2013TJP002733

PATIENT
  Age: 76 Year
  Sex: Female
  Weight: 61 kg

DRUGS (4)
  1. TAKEPRON OD TABLETS 15 [Suspect]
     Indication: GASTROOESOPHAGEAL REFLUX DISEASE
     Dosage: 15 MG, QD
     Route: 048
     Dates: start: 20130226, end: 20131025
  2. BONOTEO [Suspect]
     Dosage: UNK
     Route: 048
     Dates: end: 20131004
  3. TAMBOCOR [Concomitant]
     Indication: ARRHYTHMIA
     Dosage: 100 MG, BID
     Route: 048
     Dates: start: 20130108
  4. ARTIST [Concomitant]
     Dosage: 2.5 MG, BID
     Route: 048
     Dates: start: 20130114

REACTIONS (3)
  - Colitis microscopic [Recovering/Resolving]
  - Hypoalbuminaemia [Recovering/Resolving]
  - Cardiac failure [Recovering/Resolving]
